FAERS Safety Report 6084248-9 (Version None)
Quarter: 2009Q1

REPORT INFORMATION
  Report Type: 
  Country: None (occurrence: None)
  Receive Date: 20090219
  Receipt Date: 20090212
  Transmission Date: 20090719
  Serious: Yes (Hospitalization)
  Sender: FDA-Public Use
  Company Number: US-ELI_LILLY_AND_COMPANY-US200902002740

PATIENT
  Sex: Male

DRUGS (6)
  1. HUMALOG [Suspect]
     Dosage: 5 U, EACH MORNING
     Dates: start: 20081021
  2. HUMALOG [Suspect]
     Dosage: UNK, AS NEEDED
     Dates: start: 20081021
  3. HUMALOG [Suspect]
     Dosage: 8 U, EACH MORNING
     Dates: start: 20090211
  4. HUMALOG [Suspect]
     Dosage: 10 U, 2/D
     Dates: start: 20090211
  5. LANTUS [Concomitant]
     Indication: TYPE 2 DIABETES MELLITUS
     Dosage: 20 U, EACH EVENING
     Dates: start: 20081021
  6. LANTUS [Concomitant]
     Dosage: 30 U, EACH EVENING
     Dates: start: 20090211

REACTIONS (4)
  - BLOOD GLUCOSE FLUCTUATION [None]
  - INFECTION [None]
  - POOR PERIPHERAL CIRCULATION [None]
  - STAPHYLOCOCCAL INFECTION [None]
